FAERS Safety Report 5723107-5 (Version None)
Quarter: 2008Q2

REPORT INFORMATION
  Report Type: 
  Country: None (occurrence: None)
  Receive Date: 20080430
  Receipt Date: 20080418
  Transmission Date: 20081010
  Serious: Yes (Hospitalization)
  Sender: FDA-Public Use
  Company Number: FR-ELI_LILLY_AND_COMPANY-FR200803000508

PATIENT
  Age: 81 Year
  Sex: Female

DRUGS (3)
  1. FORTEO [Suspect]
     Indication: OSTEOPOROSIS
     Dosage: 20 UG, DAILY (1/D)
     Route: 058
     Dates: start: 20080101, end: 20080205
  2. FORTEO [Suspect]
     Dosage: 20 UG, DAILY (1/D)
     Route: 058
     Dates: start: 20080212
  3. DURAGESIC-100 [Concomitant]
     Indication: BACK PAIN
     Dosage: UNK, UNK
     Route: 062
     Dates: start: 20080128

REACTIONS (3)
  - DEHYDRATION [None]
  - PAIN [None]
  - RENAL FAILURE [None]
